FAERS Safety Report 25533116 (Version 1)
Quarter: 2025Q3

REPORT INFORMATION
  Report Type: Other
  Country: US (occurrence: US)
  Receive Date: 20250709
  Receipt Date: 20250709
  Transmission Date: 20251021
  Serious: No
  Sender: Fourrts (India) Laboratories
  Company Number: FOU-2025_LIT-0001

PATIENT
  Age: 35 Year
  Sex: Male

DRUGS (8)
  1. TADALAFIL [Suspect]
     Active Substance: TADALAFIL
     Indication: Pulmonary arterial hypertension
  2. AMBRISENTAN [Concomitant]
     Active Substance: AMBRISENTAN
  3. TREPROSTINIL [Concomitant]
     Active Substance: TREPROSTINIL
  4. TREPROSTINIL [Concomitant]
     Active Substance: TREPROSTINIL
  5. TREPROSTINIL [Concomitant]
     Active Substance: TREPROSTINIL
  6. TREPROSTINIL [Concomitant]
     Active Substance: TREPROSTINIL
  7. EPOPROSTENOL [Concomitant]
     Active Substance: EPOPROSTENOL
  8. EPOPROSTENOL [Concomitant]
     Active Substance: EPOPROSTENOL

REACTIONS (1)
  - Headache [Recovered/Resolved]
